FAERS Safety Report 9478485 (Version 1)
Quarter: 2013Q3

REPORT INFORMATION
  Report Type: Spontaneous
  Country: US (occurrence: US)
  Receive Date: 20130827
  Receipt Date: 20130827
  Transmission Date: 20140515
  Serious: No
  Sender: FDA-Public Use
  Company Number: US-009507513-1307USA016850

PATIENT
  Age: 77 Year
  Sex: Female
  Weight: 54.42 kg

DRUGS (7)
  1. LOTRISONE [Suspect]
     Dosage: ONE APPLICATION
     Route: 061
     Dates: start: 201306
  2. LOTRIMIN AF JOCK ITCH [Suspect]
     Dosage: UNK
     Route: 061
     Dates: start: 201306
  3. AUGMENTIN [Suspect]
     Indication: SINUSITIS
     Dosage: 875/125 MG, BID
     Route: 048
     Dates: start: 20130606, end: 20130613
  4. LAMISIL (TERBINAFINE) [Concomitant]
  5. SYNTHROID [Concomitant]
     Indication: HYPOTHYROIDISM
     Dosage: 50 MCG
  6. PROVENTIL [Concomitant]
     Dosage: UNK
  7. CORTICOSTEROIDS (UNSPECIFIED) [Concomitant]
     Indication: SINUSITIS
     Dosage: INHALER
     Route: 055
     Dates: start: 201306

REACTIONS (2)
  - Fungal infection [Recovering/Resolving]
  - Insomnia [Recovered/Resolved]
